FAERS Safety Report 6544458-0 (Version None)
Quarter: 2010Q1

REPORT INFORMATION
  Report Type: 
  Country: None (occurrence: None)
  Receive Date: 20100106
  Receipt Date: 20091222
  Transmission Date: 20100710
  Serious: Yes (Life-Threatening, Hospitalization)
  Sender: FDA-Public Use
  Company Number: 2009218680

PATIENT
  Age: 78 Year
  Sex: Male

DRUGS (6)
  1. DALTEPARIN SODIUM [Suspect]
     Indication: LUNG NEOPLASM MALIGNANT
     Dosage: 5000 IU, 1X/DAY
     Dates: start: 20090301
  2. CARBOPLATIN [Suspect]
  3. GEMCITABINE [Suspect]
  4. ASPIRIN [Suspect]
     Dosage: ORAL
     Route: 048
     Dates: start: 20001205, end: 20090525
  5. SOTALOL HCL [Concomitant]
  6. SIMVASTATIN [Concomitant]

REACTIONS (5)
  - EPISTAXIS [None]
  - HAEMOGLOBIN DECREASED [None]
  - NEUTROPENIA [None]
  - PLATELET COUNT DECREASED [None]
  - WHITE BLOOD CELL COUNT DECREASED [None]
